FAERS Safety Report 8340135-4 (Version None)
Quarter: 2012Q2

REPORT INFORMATION
  Report Type: 
  Country: None (occurrence: None)
  Receive Date: 20120507
  Receipt Date: 20120426
  Transmission Date: 20120825
  Serious: Yes (Hospitalization)
  Sender: FDA-Public Use
  Company Number: IT-ASTRAZENECA-2012SE27353

PATIENT
  Age: 17824 Day
  Sex: Female

DRUGS (3)
  1. SEROQUEL [Suspect]
     Indication: INTENTIONAL OVERDOSE
     Dosage: 10 TABLETS OF 100 MG, ONCE/SINGLE ADMINISTRATION
     Route: 048
     Dates: start: 20120411, end: 20120411
  2. CLONAZEPAM [Suspect]
     Indication: INTENTIONAL OVERDOSE
     Dosage: 10 TABLETS OF 2 MG, ONCE/SINGLE ADMINISTRATION
     Route: 048
     Dates: start: 20120411, end: 20120411
  3. COUMADIN [Concomitant]
     Indication: DEEP VEIN THROMBOSIS
     Route: 048

REACTIONS (6)
  - OPEN WOUND [None]
  - SYNCOPE [None]
  - PUPILS UNEQUAL [None]
  - OVERDOSE [None]
  - COMA [None]
  - AGITATION [None]
